FAERS Safety Report 7556576-9 (Version None)
Quarter: 2011Q2

REPORT INFORMATION
  Report Type: 
  Country: None (occurrence: None)
  Receive Date: 20110620
  Receipt Date: 20110608
  Transmission Date: 20111010
  Serious: Yes (Other)
  Sender: FDA-Public Use
  Company Number: US-ELI_LILLY_AND_COMPANY-US201102002037

PATIENT
  Age: 83 Year
  Sex: Female

DRUGS (2)
  1. FORTEO [Suspect]
     Indication: OSTEOPOROSIS
     Dosage: 20 UG
     Route: 065
     Dates: start: 20100801
  2. FORTEO [Suspect]
     Dosage: 20 UG
     Route: 065

REACTIONS (2)
  - KNEE ARTHROPLASTY [None]
  - EYE OPERATION [None]
